FAERS Safety Report 16246727 (Version 6)
Quarter: 2019Q2

REPORT INFORMATION
  Report Type: Report from Study
  Country: None (occurrence: US)
  Receive Date: 20190427
  Receipt Date: 20190617
  Transmission Date: 20190711
  Serious: Yes (Other)
  Sender: FDA-Public Use
  Company Number: US-ABBVIE-19K-163-2756603-00

PATIENT
  Age: 66 Year
  Sex: Female
  Weight: 52.66 kg

DRUGS (8)
  1. AMLODIPINE [Concomitant]
     Active Substance: AMLODIPINE BESYLATE
     Indication: HYPERTENSION
  2. HUMIRA [Suspect]
     Active Substance: ADALIMUMAB
     Indication: RHEUMATOID ARTHRITIS
     Route: 058
     Dates: start: 2009, end: 201902
  3. POTASSIUM [Concomitant]
     Active Substance: POTASSIUM
     Indication: PRODUCT USED FOR UNKNOWN INDICATION
  4. VENTOLIN [Concomitant]
     Active Substance: ALBUTEROL SULFATE
     Indication: ASTHMA
  5. HUMIRA [Suspect]
     Active Substance: ADALIMUMAB
     Route: 058
     Dates: start: 20190404, end: 201904
  6. HYDROCHLOROTHIAZIDE. [Suspect]
     Active Substance: HYDROCHLOROTHIAZIDE
     Indication: HYPERTENSION
     Route: 065
  7. ADVAIR HFA [Concomitant]
     Active Substance: FLUTICASONE PROPIONATE\SALMETEROL XINAFOATE
     Indication: ASTHMA
  8. IRBESARTAN. [Concomitant]
     Active Substance: IRBESARTAN
     Indication: HYPERTENSION

REACTIONS (22)
  - Blood potassium decreased [Unknown]
  - Cardiac valve thickening [Unknown]
  - Swelling face [Not Recovered/Not Resolved]
  - Asthma [Unknown]
  - Sinusitis [Recovered/Resolved]
  - Aortic aneurysm [Unknown]
  - Thyroid mass [Recovering/Resolving]
  - Electrocardiogram abnormal [Unknown]
  - Asthenia [Recovering/Resolving]
  - Ear congestion [Not Recovered/Not Resolved]
  - Hypoaesthesia [Recovered/Resolved]
  - Neuropathy peripheral [Unknown]
  - Muscle spasms [Recovering/Resolving]
  - Neuralgia [Recovering/Resolving]
  - Gait disturbance [Unknown]
  - Oropharyngeal pain [Unknown]
  - Pulmonary mass [Recovered/Resolved]
  - Ear infection [Unknown]
  - Muscular weakness [Recovering/Resolving]
  - Weight decreased [Recovering/Resolving]
  - Blood magnesium decreased [Recovering/Resolving]
  - Pneumonia [Unknown]

NARRATIVE: CASE EVENT DATE: 201608
